FAERS Safety Report 15609649 (Version 2)
Quarter: 2018Q4

REPORT INFORMATION
  Report Type: Spontaneous
  Country: DE (occurrence: DE)
  Receive Date: 20181113
  Receipt Date: 20181127
  Transmission Date: 20190205
  Serious: Yes (Death, Hospitalization, Other)
  Sender: FDA-Public Use
  Company Number: DE-BRISTOL-MYERS SQUIBB COMPANY-BMS-2018-105459

PATIENT
  Age: 55 Year
  Sex: Male

DRUGS (2)
  1. SORAFENIB [Suspect]
     Active Substance: SORAFENIB
     Indication: RENAL CELL CARCINOMA
     Route: 065
  2. OPDIVO [Suspect]
     Active Substance: NIVOLUMAB
     Indication: RENAL CELL CARCINOMA
     Dosage: UNK
     Route: 065
     Dates: start: 201601, end: 201606

REACTIONS (11)
  - Pneumonia [Unknown]
  - Diarrhoea [Unknown]
  - Visual impairment [Unknown]
  - Rash maculo-papular [Unknown]
  - Back pain [Unknown]
  - Gastrointestinal disorder [Unknown]
  - Fatigue [Unknown]
  - Night sweats [Unknown]
  - Cough [Unknown]
  - Malignant neoplasm progression [Fatal]
  - Dyspnoea [Unknown]

NARRATIVE: CASE EVENT DATE: 201605
